FAERS Safety Report 12352207 (Version 1)
Quarter: 2016Q2

REPORT INFORMATION
  Report Type: Report from Study
  Country: BR (occurrence: BR)
  Receive Date: 20160510
  Receipt Date: 20160510
  Transmission Date: 20160815
  Serious: No
  Sender: FDA-Public Use
  Company Number: PHHY2016BR063834

PATIENT
  Sex: Female
  Weight: 94 kg

DRUGS (3)
  1. TASIGNA [Suspect]
     Active Substance: NILOTINIB
     Indication: CHRONIC MYELOID LEUKAEMIA
     Dosage: 1 DF, QD
     Route: 048
  2. TASIGNA [Suspect]
     Active Substance: NILOTINIB
     Dosage: 2 DF, BID (2 CAPSULES IN THE MORNING AND 2 CAPSULES AT NIGHT)
     Route: 048
  3. GLIVEC [Suspect]
     Active Substance: IMATINIB MESYLATE
     Indication: CHRONIC MYELOID LEUKAEMIA
     Dosage: 400 MG, QD
     Route: 048

REACTIONS (6)
  - Expired product administered [Unknown]
  - Neck pain [Not Recovered/Not Resolved]
  - Facial pain [Recovered/Resolved]
  - Incorrect dose administered [Unknown]
  - Musculoskeletal pain [Not Recovered/Not Resolved]
  - Swelling face [Recovering/Resolving]
